FAERS Safety Report 11516123 (Version 2)
Quarter: 2015Q3

REPORT INFORMATION
  Report Type: Spontaneous
  Country: KR (occurrence: KR)
  Receive Date: 20150917
  Receipt Date: 20150918
  Transmission Date: 20151125
  Serious: Yes (Hospitalization)
  Sender: FDA-Public Use
  Company Number: KR-AMGEN-KORCT2015095533

PATIENT
  Age: 74 Year
  Sex: Male
  Weight: 64.8 kg

DRUGS (18)
  1. VINCRISTINE [Concomitant]
     Active Substance: VINCRISTINE
     Dosage: 2 MG, UNK
     Route: 042
     Dates: start: 20150730, end: 20150730
  2. G-LASTA [Suspect]
     Active Substance: PEGFILGRASTIM
     Dosage: 6 MG, 1X/3WEEKS
     Route: 058
     Dates: start: 20150731
  3. RITUXIMAB [Concomitant]
     Active Substance: RITUXIMAB
     Dosage: 622.5 MG, UNK
     Route: 042
     Dates: start: 20150824, end: 20150824
  4. CYCLOPHOSPHAMIDE. [Concomitant]
     Active Substance: CYCLOPHOSPHAMIDE
     Dosage: 956.25 MG, UNK
     Route: 042
     Dates: start: 20150730, end: 20150730
  5. VINCRISTINE [Concomitant]
     Active Substance: VINCRISTINE
     Dosage: 2 MG, UNK
     Route: 042
     Dates: start: 20150824, end: 20150824
  6. PREDNISOLONE. [Concomitant]
     Active Substance: PREDNISOLONE
     Dosage: 60 MG, UNK
     Route: 048
     Dates: start: 20150824, end: 20150824
  7. DOXORUBICIN [Concomitant]
     Active Substance: DOXORUBICIN
     Indication: NON-HODGKIN^S LYMPHOMA
     Dosage: 86.5 MG, UNK
     Route: 042
     Dates: start: 20150709, end: 20150709
  8. DOXORUBICIN [Concomitant]
     Active Substance: DOXORUBICIN
     Dosage: 63.75 MG, UNK
     Route: 042
     Dates: start: 20150730, end: 20150730
  9. G-LASTA [Suspect]
     Active Substance: PEGFILGRASTIM
     Dosage: 6 MG, 1X/3WEEKS
     Route: 058
     Dates: start: 20150825
  10. CYCLOPHOSPHAMIDE. [Concomitant]
     Active Substance: CYCLOPHOSPHAMIDE
     Indication: NON-HODGKIN^S LYMPHOMA
     Dosage: 1297.5 MG, UNK
     Route: 042
     Dates: start: 20150709, end: 20150709
  11. CYCLOPHOSPHAMIDE. [Concomitant]
     Active Substance: CYCLOPHOSPHAMIDE
     Dosage: 933.75 MG, UNK
     Route: 042
     Dates: start: 20150824, end: 20150824
  12. DOXORUBICIN [Concomitant]
     Active Substance: DOXORUBICIN
     Dosage: 62.25 MG, UNK
     Route: 042
     Dates: start: 20150824, end: 20150824
  13. VINCRISTINE [Concomitant]
     Active Substance: VINCRISTINE
     Indication: NON-HODGKIN^S LYMPHOMA
     Dosage: 2 MG, UNK
     Route: 042
     Dates: start: 20150709, end: 20150709
  14. PREDNISOLONE. [Concomitant]
     Active Substance: PREDNISOLONE
     Dosage: 60 MG, UNK
     Route: 048
     Dates: start: 20150730, end: 20150730
  15. G-LASTA [Suspect]
     Active Substance: PEGFILGRASTIM
     Indication: FEBRILE NEUTROPENIA
     Dosage: 6 MG, 1X/3WEEKS
     Route: 058
     Dates: start: 20150710
  16. PREDNISOLONE. [Concomitant]
     Active Substance: PREDNISOLONE
     Indication: NON-HODGKIN^S LYMPHOMA
     Dosage: 60 MG, UNK
     Route: 048
     Dates: start: 20150709, end: 20150709
  17. RITUXIMAB [Concomitant]
     Active Substance: RITUXIMAB
     Indication: NON-HODGKIN^S LYMPHOMA
     Dosage: 648.75 MG, UNK
     Route: 042
     Dates: start: 20150709, end: 20150709
  18. RITUXIMAB [Concomitant]
     Active Substance: RITUXIMAB
     Dosage: 637.5 MG, UNK
     Route: 042
     Dates: start: 20150730, end: 20150730

REACTIONS (1)
  - Neutropenia [Recovered/Resolved]

NARRATIVE: CASE EVENT DATE: 20150901
